FAERS Safety Report 15905800 (Version 1)
Quarter: 2019Q1

REPORT INFORMATION
  Report Type: Spontaneous
  Country: US (occurrence: US)
  Receive Date: 20190204
  Receipt Date: 20190204
  Transmission Date: 20190417
  Serious: Yes (Other)
  Sender: FDA-Public Use
  Company Number: US-NAPPMUNDI-USA-2019-0145839

PATIENT
  Age: 61 Year
  Sex: Female
  Weight: 72.56 kg

DRUGS (6)
  1. MORPHINE SULFATE EXTENDED-RELEASE TABLETS (RHODES 74-769, 74-862) [Suspect]
     Active Substance: MORPHINE SULFATE
     Indication: FIBROMYALGIA
     Dosage: 15 MG, Q8H
     Route: 048
     Dates: start: 2002, end: 2017
  2. MORPHINE [Suspect]
     Active Substance: MORPHINE
     Indication: FIBROMYALGIA
     Dosage: UNK
     Route: 065
     Dates: start: 2002, end: 2018
  3. MORPHINE [Suspect]
     Active Substance: MORPHINE
     Indication: PAIN
  4. MORPHINE SULFATE EXTENDED-RELEASE TABLETS (RHODES 74-769, 74-862) [Suspect]
     Active Substance: MORPHINE SULFATE
     Indication: PAIN
  5. TRAMADOL. [Concomitant]
     Active Substance: TRAMADOL
     Indication: PRODUCT USED FOR UNKNOWN INDICATION
     Dosage: 50 MG, TID
     Route: 065
  6. GABAPENTIN. [Concomitant]
     Active Substance: GABAPENTIN
     Indication: PRODUCT USED FOR UNKNOWN INDICATION
     Dosage: (2 X 300 MG) 600 MG, TID
     Route: 065

REACTIONS (11)
  - Pain [Unknown]
  - Sleep apnoea syndrome [Unknown]
  - Blood pressure increased [Unknown]
  - Spinal vascular disorder [Unknown]
  - Headache [Unknown]
  - Oxygen saturation decreased [Unknown]
  - Blood pressure fluctuation [Unknown]
  - Visual impairment [Unknown]
  - Hypopnoea [Unknown]
  - Therapeutic response unexpected [Unknown]
  - Drug withdrawal syndrome [Unknown]

NARRATIVE: CASE EVENT DATE: 201710
